FAERS Safety Report 19617848 (Version 1)
Quarter: 2021Q3

REPORT INFORMATION
  Report Type: Spontaneous
  Country: SA (occurrence: SA)
  Receive Date: 20210727
  Receipt Date: 20210727
  Transmission Date: 20211014
  Serious: Yes (Other)
  Sender: FDA-Public Use
  Company Number: SA-ALXN-A202108466

PATIENT
  Weight: 4 kg

DRUGS (1)
  1. SOLIRIS [Suspect]
     Active Substance: ECULIZUMAB
     Indication: PRODUCT USED FOR UNKNOWN INDICATION
     Dosage: UNK
     Route: 015

REACTIONS (5)
  - Hypotonia [Unknown]
  - Congenital megacolon [Unknown]
  - Dysmorphism [Unknown]
  - Cryptorchism [Unknown]
  - Macrocephaly [Unknown]
